FAERS Safety Report 7221369-9 (Version None)
Quarter: 2011Q1

REPORT INFORMATION
  Report Type: 
  Country: None (occurrence: None)
  Receive Date: 20110112
  Receipt Date: 20101227
  Transmission Date: 20110831
  Serious: No
  Sender: FDA-Public Use
  Company Number: US-B.I. PHARMACEUTICALS,INC./RIDGEFIELD-2010-BP-13916BP

PATIENT
  Sex: Male

DRUGS (9)
  1. ASPIRIN [Concomitant]
  2. TOPROL-XL [Concomitant]
     Indication: HYPERTENSION
  3. MAVIK [Concomitant]
     Indication: HYPERTENSION
  4. CALCIUM [Concomitant]
  5. TRILIPIX [Concomitant]
     Indication: BLOOD CHOLESTEROL
  6. LOVAZA [Concomitant]
  7. PRADAXA [Suspect]
     Indication: CEREBROVASCULAR ACCIDENT PROPHYLAXIS
  8. PRADAXA [Suspect]
     Indication: ATRIAL FIBRILLATION
     Dosage: 300 MG
     Route: 048
     Dates: start: 20101127
  9. ZETIA [Concomitant]
     Indication: BLOOD CHOLESTEROL INCREASED

REACTIONS (2)
  - CONSTIPATION [None]
  - DRY MOUTH [None]
